FAERS Safety Report 8841278 (Version 3)
Quarter: 2013Q1

REPORT INFORMATION
  Report Type: Report from Study
  Country: GB (occurrence: GB)
  Receive Date: 20121015
  Receipt Date: 20121130
  Transmission Date: 20140127
  Serious: Yes (Hospitalization)
  Sender: FDA-Public Use
  Company Number: GB-ASTRAZENECA-2012SE76666

PATIENT
  Age: 23179 Day
  Sex: Male

DRUGS (12)
  1. AZD6140 [Suspect]
     Indication: ACUTE MYOCARDIAL INFARCTION
     Dosage: 180 MG LOADING DOSE
     Route: 048
     Dates: start: 20120929
  2. AZD6140 [Suspect]
     Indication: ACUTE MYOCARDIAL INFARCTION
     Dosage: 90 MG TWICE DAILY DURING 30 DAYS
     Route: 048
  3. ASA [Suspect]
     Indication: ACUTE MYOCARDIAL INFARCTION
     Route: 065
     Dates: start: 20120929
  4. REOPRO [Suspect]
     Indication: THROMBOSIS PROPHYLAXIS
     Route: 042
     Dates: start: 20120929, end: 20120930
  5. GTN [Concomitant]
     Indication: ANGINA PECTORIS
     Route: 060
     Dates: start: 20120929, end: 20120929
  6. BISOPROLOL [Concomitant]
     Indication: HYPERTENSION
     Route: 048
     Dates: start: 20120930
  7. RAMIPRIL [Concomitant]
     Indication: HYPERTENSION
     Route: 048
     Dates: start: 20120930
  8. ATORVASTATIN [Concomitant]
     Indication: HYPERCHOLESTEROLAEMIA
     Route: 048
     Dates: start: 20120929
  9. PARACETAMOL [Concomitant]
     Indication: ANALGESIC THERAPY
     Route: 048
     Dates: start: 20121003, end: 20121003
  10. NACL [Concomitant]
     Indication: FLUID REPLACEMENT
     Route: 042
     Dates: start: 20120929, end: 20120929
  11. ATROPIN [Concomitant]
     Indication: ACUTE MYOCARDIAL INFARCTION
     Route: 042
     Dates: start: 20120929, end: 20120929
  12. NICOTINE REPLACEMENT THERAPY [Concomitant]
     Indication: SMOKING CESSATION THERAPY
     Route: 058
     Dates: start: 20101002

REACTIONS (1)
  - Platelet count decreased [Recovered/Resolved]
